FAERS Safety Report 5609205-5 (Version None)
Quarter: 2008Q1

REPORT INFORMATION
  Report Type: 
  Country: None (occurrence: None)
  Receive Date: 20080130
  Receipt Date: 20080130
  Transmission Date: 20080703
  Serious: No
  Sender: FDA-Public Use
  Company Number: None

PATIENT
  Age: 61 Year
  Sex: Male
  Weight: 104.8 kg

DRUGS (3)
  1. VARENICLINE STARTER PACK [Suspect]
     Dosage: AS DIRECTED MG UD PO
     Route: 048
     Dates: start: 20071107, end: 20071201
  2. ALPROSTADIL [Concomitant]
  3. ROSIGLITAZONE MALEATE [Concomitant]

REACTIONS (1)
  - ABNORMAL DREAMS [None]
